FAERS Safety Report 5471897-1 (Version None)
Quarter: 2007Q3

REPORT INFORMATION
  Report Type: 
  Country: None (occurrence: None)
  Receive Date: 20070928
  Receipt Date: 20060906
  Transmission Date: 20080115
  Serious: No
  Sender: FDA-Public Use
  Company Number: US-BRISTOL-MYERS SQUIBB COMPANY-13499959

PATIENT
  Age: 66 Year
  Sex: Male
  Weight: 102 kg

DRUGS (10)
  1. DEFINITY [Suspect]
     Indication: STRESS ECHOCARDIOGRAM
     Dates: start: 20060906, end: 20060906
  2. SODIUM CHLORIDE [Concomitant]
     Indication: STRESS ECHOCARDIOGRAM
     Dates: start: 20060906, end: 20060906
  3. CARDIZEM [Concomitant]
  4. ALTACE [Concomitant]
  5. METFORMIN [Concomitant]
  6. PLAVIX [Concomitant]
  7. WELCHOL [Concomitant]
  8. ASPIRIN [Concomitant]
  9. XALATAN [Concomitant]
     Route: 047
  10. EYE DROPS [Concomitant]
     Route: 047

REACTIONS (2)
  - BACK PAIN [None]
  - FLUSHING [None]
